FAERS Safety Report 18632326 (Version 1)
Quarter: 2020Q4

REPORT INFORMATION
  Report Type: Spontaneous
  Country: US (occurrence: US)
  Receive Date: 20201217
  Receipt Date: 20201217
  Transmission Date: 20210114
  Serious: No
  Sender: FDA-Public Use
  Company Number: US-AMGEN-USASP2020199287

PATIENT
  Age: 15 Year
  Sex: Male

DRUGS (6)
  1. IMMUNOGLOBULIN I.V [Concomitant]
     Active Substance: HUMAN IMMUNOGLOBULIN G
     Indication: EVANS SYNDROME
  2. DEXAMETHASONE. [Concomitant]
     Active Substance: DEXAMETHASONE
     Indication: EVANS SYNDROME
     Route: 065
  3. ROMIPLOSTIM [Suspect]
     Active Substance: ROMIPLOSTIM
     Indication: PANCYTOPENIA
     Dosage: UNK
     Route: 065
  4. RITUXIMAB. [Concomitant]
     Active Substance: RITUXIMAB
     Indication: EVANS SYNDROME
     Dosage: UNK
  5. MPD [Concomitant]
     Indication: EVANS SYNDROME
     Route: 042
  6. PREDNISONE. [Concomitant]
     Active Substance: PREDNISONE
     Indication: EVANS SYNDROME

REACTIONS (3)
  - Off label use [Unknown]
  - Tonsillitis [Recovered/Resolved]
  - Therapeutic product effect decreased [Unknown]
